FAERS Safety Report 14689750 (Version 2)
Quarter: 2018Q2

REPORT INFORMATION
  Report Type: Spontaneous
  Country: JP (occurrence: JP)
  Receive Date: 20180328
  Receipt Date: 20180427
  Transmission Date: 20180711
  Serious: Yes (Other)
  Sender: FDA-Public Use
  Company Number: JP-JNJFOC-20180334824

PATIENT
  Age: 77 Year
  Sex: Male
  Weight: 68.7 kg

DRUGS (5)
  1. PREMINENT [Concomitant]
     Active Substance: HYDROCHLOROTHIAZIDE\LOSARTAN POTASSIUM
     Route: 065
     Dates: start: 20151214
  2. XARELTO [Suspect]
     Active Substance: RIVAROXABAN
     Indication: ATRIAL FIBRILLATION
     Route: 048
     Dates: start: 20151214, end: 20180313
  3. XARELTO [Suspect]
     Active Substance: RIVAROXABAN
     Indication: ATRIAL FIBRILLATION
     Route: 048
     Dates: start: 20130522, end: 20151214
  4. SUNRYTHM [Concomitant]
     Active Substance: PILSICAINIDE HYDROCHLORIDE
     Route: 065
     Dates: start: 20061204
  5. CONIEL [Concomitant]
     Active Substance: BENIDIPINE HYDROCHLORIDE
     Route: 065
     Dates: start: 20061204

REACTIONS (4)
  - Interstitial lung disease [Recovering/Resolving]
  - Oropharyngeal pain [Unknown]
  - Haemoptysis [Unknown]
  - Emphysema [Unknown]

NARRATIVE: CASE EVENT DATE: 20171218
